FAERS Safety Report 5049460-6 (Version None)
Quarter: 2006Q3

REPORT INFORMATION
  Report Type: 
  Country: None (occurrence: None)
  Receive Date: 20060711
  Receipt Date: 20060711
  Transmission Date: 20061208
  Serious: Yes (Hospitalization)
  Sender: FDA-Public Use
  Company Number: None

PATIENT
  Age: 73 Year
  Sex: Female
  Weight: 99.7913 kg

DRUGS (1)
  1. FENTANYL [Suspect]
     Indication: SPINAL OPERATION
     Dosage: APPLY 1 PATCH EVERY 72 HOURS

REACTIONS (4)
  - APPLICATION SITE WARMTH [None]
  - ATRIAL FIBRILLATION [None]
  - HYPERHIDROSIS [None]
  - PHARMACEUTICAL PRODUCT COMPLAINT [None]
